FAERS Safety Report 7096465-X (Version None)
Quarter: 2010Q4

REPORT INFORMATION
  Report Type: 
  Country: None (occurrence: None)
  Receive Date: 20101111
  Receipt Date: 20101111
  Transmission Date: 20110411
  Serious: No
  Sender: FDA-Public Use
  Company Number: GXKR2010DE10069

PATIENT
  Sex: Female

DRUGS (2)
  1. OMEPRAZOLE [Suspect]
     Indication: ABDOMINAL PAIN
     Dosage: 4X40 MG, UNK
     Route: 048
  2. OMEPRAZOLE [Suspect]

REACTIONS (1)
  - INTENTIONAL OVERDOSE [None]
